FAERS Safety Report 8401635-1 (Version None)
Quarter: 2012Q2

REPORT INFORMATION
  Report Type: 
  Country: None (occurrence: None)
  Receive Date: 20120601
  Receipt Date: 20120319
  Transmission Date: 20120825
  Serious: Yes (Life-Threatening, Hospitalization, Other)
  Sender: FDA-Public Use
  Company Number: CN-ROXANE LABORATORIES, INC.-2012-EU-01577GD

PATIENT
  Age: 29 Year
  Sex: Male

DRUGS (3)
  1. EPHEDRINE [Suspect]
     Dosage: 2 BOTTLES OF COUGH MIXTURES
  2. DEXTROMETHORPHAN HYDROBROMIDE [Suspect]
     Dosage: 2 BOTTLES OF COUGH MIXTURES
  3. CODEINE [Suspect]
     Dosage: 2 BOTTLES OF COUGH MIXTURES

REACTIONS (8)
  - RHABDOMYOLYSIS [None]
  - DRUG ABUSE [None]
  - PYREXIA [None]
  - CONFUSIONAL STATE [None]
  - MUSCLE RIGIDITY [None]
  - FOLATE DEFICIENCY [None]
  - LEUKOCYTOSIS [None]
  - ELECTROENCEPHALOGRAM ABNORMAL [None]
